FAERS Safety Report 5295132-2 (Version None)
Quarter: 2007Q2

REPORT INFORMATION
  Report Type: 
  Country: None (occurrence: None)
  Receive Date: 20070412
  Receipt Date: 20070403
  Transmission Date: 20071010
  Serious: Yes (Congenital Anomaly, Other)
  Sender: FDA-Public Use
  Company Number: HQ7368219OCT2001

PATIENT

DRUGS (5)
  1. RAPAMUNE [Suspect]
     Indication: PROPHYLAXIS AGAINST TRANSPLANT REJECTION
     Dosage: 5 MG DAILY STARTED AT WEEK 24 OF GESTATION
     Route: 064
     Dates: start: 20010601, end: 20010726
  2. THYMOGLOBULIN [Concomitant]
     Dosage: UNKNOWN
     Route: 064
     Dates: start: 20010601
  3. PREDNISONE TAB [Concomitant]
     Indication: PROPHYLAXIS AGAINST TRANSPLANT REJECTION
     Dosage: UNKNOWN
     Route: 064
     Dates: start: 20010104, end: 20010726
  4. CELLCEPT [Suspect]
     Indication: PROPHYLAXIS AGAINST TRANSPLANT REJECTION
     Route: 064
     Dates: start: 20010104, end: 20010601
  5. PROGRAF [Suspect]
     Indication: PROPHYLAXIS AGAINST TRANSPLANT REJECTION
     Dosage: UNKNOWN
     Route: 064
     Dates: start: 20010104, end: 20010726

REACTIONS (5)
  - CLEFT LIP [None]
  - CLEFT PALATE [None]
  - DRUG EXPOSURE DURING PREGNANCY [None]
  - MICROTIA [None]
  - PREMATURE BABY [None]
